FAERS Safety Report 15968626 (Version 2)
Quarter: 2019Q3

REPORT INFORMATION
  Report Type: Spontaneous
  Country: GR (occurrence: GR)
  Receive Date: 20190215
  Receipt Date: 20190826
  Transmission Date: 20191004
  Serious: Yes (Hospitalization, Other)
  Sender: FDA-Public Use
  Company Number: GR-MYLANLABS-2019M1013599

PATIENT
  Age: 3 Year

DRUGS (5)
  1. BUDESONIDE. [Suspect]
     Active Substance: BUDESONIDE
     Indication: PRODUCT USED FOR UNKNOWN INDICATION
     Dosage: UNK
     Route: 062
  2. SALBUTAMOL [Suspect]
     Active Substance: ALBUTEROL
     Indication: PNEUMONIA PNEUMOCOCCAL
     Dosage: UNK
     Route: 062
  3. CLINDAMYCIN. [Concomitant]
     Active Substance: CLINDAMYCIN
     Indication: PNEUMONIA PNEUMOCOCCAL
     Dosage: UNK
     Route: 042
  4. OXYGEN. [Concomitant]
     Active Substance: OXYGEN
     Indication: PRODUCT USED FOR UNKNOWN INDICATION
  5. CEFTRIAXONE. [Concomitant]
     Active Substance: CEFTRIAXONE
     Indication: PNEUMONIA PNEUMOCOCCAL
     Dosage: UNK
     Route: 042

REACTIONS (5)
  - Pleural effusion [Unknown]
  - Laboratory test abnormal [Unknown]
  - Pneumonia pneumococcal [Unknown]
  - Respiratory distress [Unknown]
  - Condition aggravated [Unknown]
